FAERS Safety Report 5390302-7 (Version None)
Quarter: 2007Q3

REPORT INFORMATION
  Report Type: 
  Country: None (occurrence: None)
  Receive Date: 20070718
  Receipt Date: 20070710
  Transmission Date: 20080115
  Serious: Yes (Other)
  Sender: FDA-Public Use
  Company Number: SE-PFIZER INC-2007057269

PATIENT
  Age: 54 Year
  Sex: Female

DRUGS (2)
  1. CHAMPIX [Suspect]
     Indication: SMOKING CESSATION THERAPY
     Dosage: FREQ:DAILY
     Route: 048
     Dates: start: 20070630, end: 20070704
  2. LEVAXIN [Concomitant]
     Indication: METABOLIC DISORDER
     Route: 048

REACTIONS (2)
  - DEPRESSED MOOD [None]
  - SUICIDE ATTEMPT [None]
